FAERS Safety Report 8089150-9 (Version None)
Quarter: 2012Q1

REPORT INFORMATION
  Report Type: 
  Country: None (occurrence: None)
  Receive Date: 20120128
  Receipt Date: 20110712
  Transmission Date: 20120608
  Serious: No
  Sender: FDA-Public Use
  Company Number: US-ABBOTT-11P-163-0838245-00

PATIENT
  Age: 47 Year
  Sex: Female

DRUGS (2)
  1. HUMIRA [Suspect]
     Indication: PSORIASIS
     Route: 058
     Dates: start: 20090701
  2. DICLOFENAC SODIUM [Concomitant]
     Indication: INFLAMMATION
     Dosage: 200 MG DAILY

REACTIONS (2)
  - INJECTION SITE SWELLING [None]
  - RASH [None]
